FAERS Safety Report 7743210-8 (Version None)
Quarter: 2011Q3

REPORT INFORMATION
  Report Type: 
  Country: None (occurrence: None)
  Receive Date: 20110912
  Receipt Date: 20110829
  Transmission Date: 20111222
  Serious: No
  Sender: FDA-Public Use
  Company Number: CA-ELI_LILLY_AND_COMPANY-CA201108008421

PATIENT
  Sex: Male

DRUGS (10)
  1. ZYPREXA [Suspect]
     Dosage: 1 DF, UNKNOWN
     Dates: start: 19990101
  2. ALTACE [Concomitant]
  3. GLYBURIDE [Concomitant]
  4. CRESTOR [Concomitant]
  5. RISPERIDONE [Concomitant]
  6. LIPITOR [Concomitant]
  7. PROCYCLIDINE HYDROCHLORIDE 2MG TAB [Concomitant]
  8. FLUPHENAZINE DECANOATE [Concomitant]
  9. DIVALPROEX SODIUM [Concomitant]
  10. ZYPREXA [Suspect]
     Dosage: 22.5 MG, QD

REACTIONS (6)
  - HAEMOGLOBIN DECREASED [None]
  - DIABETES MELLITUS [None]
  - RED BLOOD CELL COUNT DECREASED [None]
  - HAEMATOCRIT DECREASED [None]
  - OVERDOSE [None]
  - PLATELET COUNT DECREASED [None]
